FAERS Safety Report 8862304 (Version 1)
Quarter: 2012Q4

REPORT INFORMATION
  Report Type: 
  Country: BR (occurrence: BR)
  Receive Date: 20121026
  Receipt Date: 20121026
  Transmission Date: 20130627
  Serious: Yes (Other)
  Sender: FDA-Public Use
  Company Number: BR-JNJFOC-20121009560

PATIENT
  Age: 70 Year
  Sex: Female
  Weight: 60 kg

DRUGS (3)
  1. SIMPONI [Suspect]
     Indication: POLYARTHRITIS
     Route: 058
     Dates: start: 20120814
  2. SIMPONI [Suspect]
     Indication: POLYARTHRITIS
     Dosage: second dose
     Route: 058
     Dates: start: 20120917
  3. PREDNISONE [Concomitant]
     Indication: POLYARTHRITIS
     Route: 065

REACTIONS (3)
  - Gait disturbance [Not Recovered/Not Resolved]
  - Rheumatoid arthritis [Not Recovered/Not Resolved]
  - Muscle rigidity [Not Recovered/Not Resolved]
